FAERS Safety Report 4401938-1 (Version None)
Quarter: 2004Q3

REPORT INFORMATION
  Report Type: 
  Country: None (occurrence: None)
  Receive Date: 20040720
  Receipt Date: 20040714
  Transmission Date: 20050211
  Serious: Yes (Death, Hospitalization)
  Sender: FDA-Public Use
  Company Number: PHBS2004GR09423

PATIENT
  Age: 71 Year
  Sex: Male

DRUGS (1)
  1. DICLOFENAC [Suspect]
     Indication: BACK PAIN
     Dosage: 50 MG, BID

REACTIONS (16)
  - ABDOMINAL PAIN UPPER [None]
  - ASCITES [None]
  - ASTERIXIS [None]
  - COLONIC FISTULA [None]
  - CONFUSIONAL STATE [None]
  - DISORIENTATION [None]
  - GASTRIC ULCER PERFORATION [None]
  - GLASGOW COMA SCALE ABNORMAL [None]
  - HEPATIC ENCEPHALOPATHY [None]
  - HEPATIC FAILURE [None]
  - HEPATOSPLENOMEGALY [None]
  - HYPERBILIRUBINAEMIA [None]
  - HYPOALBUMINAEMIA [None]
  - HYPONATRAEMIA [None]
  - JAUNDICE [None]
  - PYREXIA [None]
